FAERS Safety Report 12691137 (Version 1)
Quarter: 2016Q3

REPORT INFORMATION
  Report Type: Spontaneous
  Country: US (occurrence: US)
  Receive Date: 20160826
  Receipt Date: 20160826
  Transmission Date: 20161109
  Serious: Yes (Disabling, Other)
  Sender: FDA-Public Use
  Company Number: US-REGENERON PHARMACEUTICALS, INC.-2016-18251

PATIENT

DRUGS (1)
  1. EYLEA [Suspect]
     Active Substance: AFLIBERCEPT
     Indication: PRODUCT USED FOR UNKNOWN INDICATION
     Dosage: UNK, LAST DOSE ADMINISTERED PRIOR TO EVENT
     Dates: start: 20160608, end: 20160608

REACTIONS (4)
  - Blindness unilateral [Not Recovered/Not Resolved]
  - Intraocular pressure increased [Recovered/Resolved]
  - Staphylococcal infection [Unknown]
  - Endophthalmitis [Unknown]

NARRATIVE: CASE EVENT DATE: 201606
